FAERS Safety Report 16503065 (Version 1)
Quarter: 2019Q3

REPORT INFORMATION
  Report Type: Spontaneous
  Country: GB (occurrence: GB)
  Receive Date: 20190701
  Receipt Date: 20190701
  Transmission Date: 20191004
  Serious: Yes (Hospitalization, Other)
  Sender: FDA-Public Use
  Company Number: GB-ELI_LILLY_AND_COMPANY-GB201906012343

PATIENT
  Sex: Male

DRUGS (5)
  1. FORSTEO 250UG/ML [Suspect]
     Active Substance: TERIPARATIDE
     Dosage: 0.5 UG/KG, DAILY
     Route: 058
  2. VITAMIN D [COLECALCIFEROL] [Concomitant]
     Active Substance: CHOLECALCIFEROL
     Dosage: UNK, MONTHLY (1/M)
     Route: 048
  3. FORSTEO 250UG/ML [Suspect]
     Active Substance: TERIPARATIDE
     Dosage: 2.6 UG/KG, DAILY
     Route: 058
  4. FORSTEO 250UG/ML [Suspect]
     Active Substance: TERIPARATIDE
     Indication: POLYGLANDULAR AUTOIMMUNE SYNDROME TYPE I
     Dosage: 20 UG, BID
     Route: 058
  5. CALCIUM [Concomitant]
     Active Substance: CALCIUM
     Dosage: 40 MG/KG, DAILY
     Route: 048

REACTIONS (12)
  - Wrong technique in product usage process [Unknown]
  - Urine calcium/creatinine ratio increased [Recovered/Resolved]
  - Inappropriate schedule of product administration [Unknown]
  - Primary adrenal insufficiency [Unknown]
  - Blood alkaline phosphatase increased [Recovered/Resolved]
  - Product administered at inappropriate site [Unknown]
  - Incorrect product administration duration [Unknown]
  - Off label use [Unknown]
  - Prescribed overdose [Unknown]
  - Hypocalcaemia [Unknown]
  - Hypercalcaemia [Unknown]
  - Blood 25-hydroxycholecalciferol decreased [Unknown]
